FAERS Safety Report 7637624-4 (Version None)
Quarter: 2011Q3

REPORT INFORMATION
  Report Type: 
  Country: None (occurrence: None)
  Receive Date: 20110726
  Receipt Date: 20110719
  Transmission Date: 20111222
  Serious: Yes (Life-Threatening, Hospitalization, Other)
  Sender: FDA-Public Use
  Company Number: GXKR2011DE02015

PATIENT
  Age: 45 Year
  Sex: Female
  Weight: 61 kg

DRUGS (5)
  1. ANTIRHEUMATIC (INCL.ANTIPHLOGISTICS) [Concomitant]
     Dosage: 1 DF, QW
     Route: 003
     Dates: start: 20110201
  2. METHOTREXATE [Suspect]
     Indication: RHEUMATOID ARTHRITIS
     Dosage: 10 MG, QW
     Route: 048
     Dates: start: 20110215, end: 20110406
  3. IBUPROFEN [Suspect]
     Dosage: 600 MG, BID
     Route: 048
     Dates: start: 20100101, end: 20110421
  4. METHOTREXATE SODIUM [Suspect]
     Dosage: 10 MG, ONCE/SINGLE
     Route: 030
     Dates: start: 20110412, end: 20110412
  5. IBUPROFEN [Suspect]
     Dosage: 400 MG, BID
     Route: 048
     Dates: start: 20091201, end: 20100101

REACTIONS (7)
  - TUBULOINTERSTITIAL NEPHRITIS [None]
  - RENAL FAILURE ACUTE [None]
  - LEUKOPENIA [None]
  - THROMBOCYTOPENIA [None]
  - RENAL TUBULAR NECROSIS [None]
  - PANCYTOPENIA [None]
  - HAEMOGLOBIN DECREASED [None]
